FAERS Safety Report 5176558-4 (Version None)
Quarter: 2006Q4

REPORT INFORMATION
  Report Type: 
  Country: None (occurrence: None)
  Receive Date: 20061207
  Receipt Date: 20061121
  Transmission Date: 20070319
  Serious: Yes (Other)
  Sender: FDA-Public Use
  Company Number: 062-20785-06111349

PATIENT
  Sex: Male

DRUGS (1)
  1. THALIDOMIDE [Suspect]
     Indication: MULTIPLE MYELOMA
     Dosage: 200 MG, 1 IN 1 D

REACTIONS (7)
  - AGGRESSION [None]
  - AMNESIA [None]
  - APHASIA [None]
  - EMOTIONAL DISORDER [None]
  - ENCEPHALOPATHY [None]
  - NEUROTOXICITY [None]
  - PROTEIN TOTAL INCREASED [None]
